FAERS Safety Report 19050962 (Version 10)
Quarter: 2021Q4

REPORT INFORMATION
  Report Type: Report from Study
  Country: IL (occurrence: IL)
  Receive Date: 20210323
  Receipt Date: 20211227
  Transmission Date: 20220303
  Serious: Yes (Hospitalization)
  Sender: FDA-Public Use
  Company Number: IL-ABBVIE-21K-082-3737313-00

PATIENT
  Sex: Male

DRUGS (8)
  1. CARBIDOPA\LEVODOPA [Suspect]
     Active Substance: CARBIDOPA\LEVODOPA
     Indication: Parkinson^s disease
     Dosage: DOSE INCREASED
     Route: 050
     Dates: start: 20210103, end: 2021
  2. CARBIDOPA\LEVODOPA [Suspect]
     Active Substance: CARBIDOPA\LEVODOPA
     Dosage: CURRENT MD:16.0 ML, CURRENT CD: 3.5 ML/HOUR, CURRENT ED: 1.5 ML, REMAINS AT 16 H
     Route: 050
     Dates: start: 2021, end: 2021
  3. CARBIDOPA\LEVODOPA [Suspect]
     Active Substance: CARBIDOPA\LEVODOPA
     Dosage: CONTINUOUS DOSAGE (ML/H) 3.8
     Route: 050
     Dates: start: 2021, end: 2021
  4. CARBIDOPA\LEVODOPA [Suspect]
     Active Substance: CARBIDOPA\LEVODOPA
     Dosage: CONTINUOUS AND EXTRA WAS DECREASED
     Route: 050
     Dates: start: 2021, end: 2021
  5. CARBIDOPA\LEVODOPA [Suspect]
     Active Substance: CARBIDOPA\LEVODOPA
     Dosage: CONTINUOUS DOSAGE (ML/H) 3.5?CONTINUOUS WAS DECREASED
     Route: 050
     Dates: start: 2021, end: 2021
  6. CARBIDOPA\LEVODOPA [Suspect]
     Active Substance: CARBIDOPA\LEVODOPA
     Dosage: CURRENT: MORNING 16.0 ML, CONTINUOUS 3.5 ML/HOUR, EXTRA 1.0 ML
     Route: 050
     Dates: start: 2021, end: 2021
  7. CARBIDOPA\LEVODOPA [Suspect]
     Active Substance: CARBIDOPA\LEVODOPA
     Dosage: CURRENT: MORNING 14.0, CONTINUOUS DOSE 3.3 ML/HOUR, EXTRA DOSE 1.3 ML
     Route: 050
     Dates: start: 2021
  8. SINEMET [Concomitant]
     Active Substance: CARBIDOPA\LEVODOPA
     Indication: Product used for unknown indication

REACTIONS (9)
  - Lung disorder [Recovering/Resolving]
  - Device issue [Recovering/Resolving]
  - Tremor [Recovering/Resolving]
  - On and off phenomenon [Recovered/Resolved]
  - Middle insomnia [Unknown]
  - Dyskinesia [Not Recovered/Not Resolved]
  - Freezing phenomenon [Unknown]
  - On and off phenomenon [Recovered/Resolved]
  - On and off phenomenon [Recovering/Resolving]

NARRATIVE: CASE EVENT DATE: 20210101
